FAERS Safety Report 5787178-2 (Version None)
Quarter: 2008Q2

REPORT INFORMATION
  Report Type: 
  Country: None (occurrence: None)
  Receive Date: 20080625
  Receipt Date: 20080516
  Transmission Date: 20081010
  Serious: No
  Sender: FDA-Public Use
  Company Number: US-BAUSCH-2008BL002239

PATIENT
  Age: 50 Year
  Sex: Female

DRUGS (4)
  1. ALAWAY [Suspect]
     Indication: EYE PRURITUS
     Route: 047
     Dates: start: 20080501, end: 20080514
  2. CHLORPHENIRAMINE MALEATE AND PSEUDOEPHEDRINE HCL [Concomitant]
     Indication: HYPERSENSITIVITY
     Route: 048
     Dates: start: 19780520
  3. REFRESH [Concomitant]
     Indication: KERATOCONJUNCTIVITIS SICCA
     Route: 047
     Dates: start: 20060520
  4. PATADAY [Concomitant]
     Indication: EYE ALLERGY
     Route: 047
     Dates: start: 20070520

REACTIONS (1)
  - EYE IRRITATION [None]
